FAERS Safety Report 17159970 (Version 2)
Quarter: 2020Q2

REPORT INFORMATION
  Report Type: Spontaneous
  Country: US (occurrence: US)
  Receive Date: 20191216
  Receipt Date: 20200504
  Transmission Date: 20200713
  Serious: Yes (Other)
  Sender: FDA-Public Use
  Company Number: US-SA-2019SA343448

PATIENT
  Age: 49 Year
  Sex: Female
  Weight: 73.47 kg

DRUGS (2)
  1. TAXOTERE [Suspect]
     Active Substance: DOCETAXEL
     Indication: BREAST CANCER FEMALE
     Dosage: UNK EVERY 2 WEEKS
     Route: 042
     Dates: start: 2005, end: 2005
  2. TAXOTERE [Suspect]
     Active Substance: DOCETAXEL
     Dosage: UNK EVERY 2 WEEKS
     Route: 042
     Dates: start: 2005, end: 2005

REACTIONS (2)
  - Emotional distress [Unknown]
  - Alopecia [Not Recovered/Not Resolved]
